FAERS Safety Report 6304370-9 (Version None)
Quarter: 2009Q3

REPORT INFORMATION
  Report Type: 
  Country: None (occurrence: None)
  Receive Date: 20090811
  Receipt Date: 20090729
  Transmission Date: 20100115
  Serious: Yes (Death)
  Sender: FDA-Public Use
  Company Number: BR-MEDIMMUNE-MEDI-0008727

PATIENT
  Sex: Female

DRUGS (1)
  1. SYNAGIS [Suspect]
     Dates: start: 20090301, end: 20090615

REACTIONS (4)
  - DEATH [None]
  - DYSPNOEA [None]
  - HYDROCEPHALUS [None]
  - RESPIRATORY SYNCYTIAL VIRUS BRONCHIOLITIS [None]
